FAERS Safety Report 9168449 (Version 1)
Quarter: 2013Q1

REPORT INFORMATION
  Report Type: Spontaneous
  Country: GB (occurrence: None)
  Receive Date: 20130307
  Receipt Date: 20130307
  Transmission Date: 20140127
  Serious: Yes (Other)
  Sender: FDA-Public Use
  Company Number: 2013020242

PATIENT
  Age: 25 Year
  Sex: Male

DRUGS (2)
  1. MESALAZINE [Suspect]
     Indication: COLITIS ULCERATIVE
  2. AZATHIOPRINE (AZATHIPRINE) [Concomitant]

REACTIONS (1)
  - Organising pneumonia [None]
